FAERS Safety Report 18489155 (Version 5)
Quarter: 2021Q4

REPORT INFORMATION
  Report Type: Spontaneous
  Country: US (occurrence: US)
  Receive Date: 20201111
  Receipt Date: 20211202
  Transmission Date: 20220303
  Serious: Yes (Hospitalization)
  Sender: FDA-Public Use
  Company Number: US-CELGENE-USA-20201101371

PATIENT
  Age: 74 Year
  Sex: Female

DRUGS (2)
  1. AZACITIDINE [Suspect]
     Active Substance: AZACITIDINE
     Indication: Myelodysplastic syndrome
     Route: 065
  2. AZACITIDINE [Suspect]
     Active Substance: AZACITIDINE
     Route: 065

REACTIONS (1)
  - Interstitial lung disease [Recovered/Resolved]
